FAERS Safety Report 16154602 (Version 1)
Quarter: 2019Q2

REPORT INFORMATION
  Report Type: Spontaneous
  Country: DK (occurrence: DK)
  Receive Date: 20190403
  Receipt Date: 20190403
  Transmission Date: 20190711
  Serious: Yes (Life-Threatening, Hospitalization)
  Sender: FDA-Public Use
  Company Number: DK-TEVA-2019-DK-1031619

PATIENT
  Age: 46 Year
  Sex: Male
  Weight: 107 kg

DRUGS (9)
  1. FORMOTEROL OG BUDESONID [Concomitant]
     Indication: ASTHMA
     Dosage: 4 DOSAGE FORMS DAILY;
     Route: 055
     Dates: start: 20160408
  2. FLUTICASONE. [Concomitant]
     Active Substance: FLUTICASONE
     Indication: RHINITIS ALLERGIC
     Dosage: 1 DOSAGE FORMS DAILY; STRENGTH: 27.5 MIKROGRAM.
     Route: 045
     Dates: start: 20150915
  3. OXAZEPAM. [Concomitant]
     Active Substance: OXAZEPAM
     Indication: ANXIETY
     Dosage: 7.5 MILLIGRAM DAILY; STRENGTH: 15 MG.
     Route: 048
     Dates: start: 20150310
  4. SALBUTAMOL [Concomitant]
     Active Substance: ALBUTEROL
     Indication: BRONCHOSPASM
     Dosage: STRENGTH: 0.2 MG IN DISCUS.?DOSE: 2 SUCTION AS NEEDED, NOT MORE THAN 6 TIMES DAILY.
     Route: 055
     Dates: start: 20141021
  5. CETIRIZIN ^TEVA^ [Concomitant]
     Indication: SEASONAL ALLERGY
     Dosage: 10 MILLIGRAM DAILY; STYRKE: 10 MG.
     Route: 048
     Dates: start: 20150916
  6. RISPERIDON ^TEVA^ [Suspect]
     Active Substance: RISPERIDONE
     Indication: PSYCHOTIC DISORDER
     Dosage: 6 MILLIGRAM DAILY; DOSE: 6 MG FOR THE NIGHT.?STRENGTH: 3 MG.
     Route: 048
     Dates: start: 20141031, end: 20190301
  7. ZOPICLONE [Concomitant]
     Active Substance: ZOPICLONE
     Indication: INSOMNIA
     Dosage: 7.5 MILLIGRAM DAILY; STRENGTH: 7.5 MG.
     Route: 048
     Dates: start: 20160512
  8. UNIKALK MED D-VITAMIN [Concomitant]
     Indication: VITAMIN SUPPLEMENTATION
     Dosage: 1 DOSAGE FORMS DAILY;
     Route: 048
     Dates: start: 20160122
  9. PARACETAMOL [Concomitant]
     Active Substance: ACETAMINOPHEN
     Indication: PAIN
     Dosage: STRENGTH: 500 MG.?DOSE: 1 G IF NEEDED, MAX 3 TIMES DAILY.
     Route: 048
     Dates: start: 20161018

REACTIONS (2)
  - Deep vein thrombosis [Recovering/Resolving]
  - Pulmonary embolism [Recovering/Resolving]

NARRATIVE: CASE EVENT DATE: 20190228
